FAERS Safety Report 15251208 (Version 1)
Quarter: 2018Q3

REPORT INFORMATION
  Report Type: Spontaneous
  Country: US (occurrence: US)
  Receive Date: 20180807
  Receipt Date: 20180807
  Transmission Date: 20181010
  Serious: Yes (Other)
  Sender: FDA-Public Use
  Company Number: US-BIO PRODUCTS LABORATORY LTD-2053388

PATIENT
  Age: 64 Year
  Sex: Female

DRUGS (2)
  1. COUMADINE [Concomitant]
     Active Substance: WARFARIN SODIUM
  2. GAMMAPLEX [Suspect]
     Active Substance: HUMAN IMMUNOGLOBULIN G
     Indication: GUILLAIN-BARRE SYNDROME
     Route: 042
     Dates: start: 20180723, end: 20180724

REACTIONS (3)
  - Dysarthria [Unknown]
  - Dry mouth [Unknown]
  - Aphasia [Unknown]

NARRATIVE: CASE EVENT DATE: 20180725
